FAERS Safety Report 4603744-1 (Version None)
Quarter: 2005Q1

REPORT INFORMATION
  Report Type: 
  Country: None (occurrence: None)
  Receive Date: 20050308
  Receipt Date: 20050308
  Transmission Date: 20050727
  Serious: Yes (Other)
  Sender: FDA-Public Use
  Company Number: None

PATIENT
  Sex: Male
  Weight: 116.5744 kg

DRUGS (7)
  1. KETOROLAC    30 MG/ML     N/A [Suspect]
     Indication: BACK PAIN
     Dosage: 60 MG   WKLY X 12 DAYS   INTRAMUSCU
     Route: 030
     Dates: start: 20050225, end: 20050303
  2. SULINDAC [Suspect]
     Indication: BACK PAIN
     Dosage: 200 MG    TID   ORAL
     Route: 048
     Dates: start: 20050225, end: 20050303
  3. INDOMETHACIN [Concomitant]
  4. MAXZIDE [Concomitant]
  5. ZANTAC [Concomitant]
  6. MISOPROSTOL [Concomitant]
  7. METOPROLOL [Concomitant]

REACTIONS (3)
  - ALANINE AMINOTRANSFERASE INCREASED [None]
  - ASPARTATE AMINOTRANSFERASE INCREASED [None]
  - BLOOD CREATINE INCREASED [None]
